FAERS Safety Report 6888649-8 (Version None)
Quarter: 2010Q3

REPORT INFORMATION
  Report Type: 
  Country: None (occurrence: None)
  Receive Date: 20100730
  Receipt Date: 20061026
  Transmission Date: 20110219
  Serious: No
  Sender: FDA-Public Use
  Company Number: US-PFIZER INC-2006132519

PATIENT
  Sex: Female
  Weight: 68.04 kg

DRUGS (7)
  1. DOXEPIN HCL [Suspect]
     Indication: SYSTEMIC LUPUS ERYTHEMATOSUS
  2. DOXEPIN HCL [Suspect]
     Indication: MUSCLE RELAXANT THERAPY
  3. DOXEPIN HCL [Suspect]
     Indication: INSOMNIA
  4. DOXEPIN HCL [Suspect]
     Indication: PAIN
  5. CARDIZEM [Concomitant]
     Route: 048
  6. ATENOLOL [Concomitant]
     Route: 048
  7. ESTRACE [Concomitant]
     Route: 048

REACTIONS (1)
  - DRUG INEFFECTIVE [None]
